FAERS Safety Report 5751070-X (Version None)
Quarter: 2008Q2

REPORT INFORMATION
  Report Type: 
  Country: None (occurrence: None)
  Receive Date: 20080528
  Receipt Date: 20080519
  Transmission Date: 20081010
  Serious: Yes (Hospitalization)
  Sender: FDA-Public Use
  Company Number: DE-WYE-H04233308

PATIENT
  Sex: Male

DRUGS (6)
  1. CORDAREX [Suspect]
     Indication: ARRHYTHMIA
     Route: 048
     Dates: start: 20061201, end: 20071101
  2. DIOVAN [Concomitant]
     Indication: HYPERTENSION
     Route: 048
     Dates: start: 20061201
  3. SIMVASTATIN [Concomitant]
     Indication: PROPHYLAXIS
     Route: 048
     Dates: start: 20061201
  4. SIMVASTATIN [Concomitant]
     Indication: CORONARY ARTERY DISEASE
  5. ATENOLOL [Concomitant]
     Indication: HYPERTENSION
     Route: 048
     Dates: start: 20070301
  6. ACETYLSALICYLIC ACID SRT [Concomitant]
     Indication: CORONARY ARTERY DISEASE
     Route: 048
     Dates: start: 20061201

REACTIONS (3)
  - MITRAL VALVE INCOMPETENCE [None]
  - PULMONARY FIBROSIS [None]
  - PULMONARY HYPERTENSION [None]
